FAERS Safety Report 7490019-9 (Version None)
Quarter: 2011Q2

REPORT INFORMATION
  Report Type: 
  Country: None (occurrence: None)
  Receive Date: 20110517
  Receipt Date: 20110517
  Transmission Date: 20111010
  Serious: Yes (Life-Threatening, Disabling, Other)
  Sender: FDA-Public Use
  Company Number: None

PATIENT
  Sex: Female
  Weight: 63.5036 kg

DRUGS (1)
  1. SULFAMETHOXAZOLE AND TRIMETHOPRIM [Suspect]
     Indication: URINARY TRACT INFECTION
     Dosage: 1 TWICE A DAY PO 2 TOTAL PILLS TAKEN
     Route: 048
     Dates: start: 20110507, end: 20110508

REACTIONS (6)
  - ODYNOPHAGIA [None]
  - SWELLING FACE [None]
  - LIP SWELLING [None]
  - SWOLLEN TONGUE [None]
  - OROPHARYNGEAL BLISTERING [None]
  - STEVENS-JOHNSON SYNDROME [None]
